FAERS Safety Report 9038270 (Version 1)
Quarter: 2013Q1

REPORT INFORMATION
  Report Type: Spontaneous
  Country: US (occurrence: US)
  Receive Date: 20130129
  Receipt Date: 20130129
  Transmission Date: 20140127
  Serious: No
  Sender: FDA-Public Use
  Company Number: US-GLAXOSMITHKLINE-A1004389A

PATIENT
  Age: 57 Year
  Sex: Female
  Weight: 79 kg

DRUGS (15)
  1. WELLBUTRIN [Suspect]
     Indication: DEPRESSION
     Route: 065
  2. HUMIRA [Suspect]
     Indication: RHEUMATOID ARTHRITIS
     Dosage: 40MG EVERY TWO WEEKS
     Route: 058
     Dates: start: 20120920
  3. METHOTREXATE [Suspect]
     Indication: RHEUMATOID ARTHRITIS
     Route: 065
  4. VITAMIN B 12 [Concomitant]
  5. CALCIUM + VITAMIN D [Concomitant]
  6. CYMBALTA [Concomitant]
  7. FLAX SEED OIL [Concomitant]
  8. FOLIC ACID [Concomitant]
  9. MULTIVITAMIN [Concomitant]
  10. NAPROXEN [Concomitant]
  11. NEURONTIN [Concomitant]
  12. OMEGA 3 FISH OIL [Concomitant]
  13. PREDNISONE [Concomitant]
  14. SULFASALAZINE [Concomitant]
  15. VITAMIN C,D,E [Concomitant]

REACTIONS (6)
  - Fatigue [Unknown]
  - Disturbance in attention [Unknown]
  - Condition aggravated [Unknown]
  - Influenza like illness [Unknown]
  - Injection site bruising [Unknown]
  - Headache [Unknown]
